FAERS Safety Report 16882014 (Version 2)
Quarter: 2020Q2

REPORT INFORMATION
  Report Type: Spontaneous
  Country: US (occurrence: US)
  Receive Date: 20191003
  Receipt Date: 20200511
  Transmission Date: 20200713
  Serious: No
  Sender: FDA-Public Use
  Company Number: US-TEVA-2019-US-1116348

PATIENT
  Sex: Female

DRUGS (2)
  1. METHYLPHENIDATE CAMBER [Suspect]
     Active Substance: METHYLPHENIDATE
     Route: 065
  2. METHYLPHENIDATE ACTAVIS [Suspect]
     Active Substance: METHYLPHENIDATE
     Route: 065

REACTIONS (3)
  - Blood pressure increased [Unknown]
  - Depression [Unknown]
  - Tremor [Unknown]
